FAERS Safety Report 8206756-4 (Version None)
Quarter: 2012Q1

REPORT INFORMATION
  Report Type: 
  Country: None (occurrence: None)
  Receive Date: 20120314
  Receipt Date: 20120308
  Transmission Date: 20120608
  Serious: Yes (Other)
  Sender: FDA-Public Use
  Company Number: US-SP-2011-12360

PATIENT
  Sex: Female

DRUGS (6)
  1. TUBERSOL [Suspect]
     Indication: TUBERCULIN TEST
     Route: 023
     Dates: start: 20110926, end: 20110926
  2. LEXAPRO [Concomitant]
  3. FLUZONE [Suspect]
     Indication: IMMUNISATION
     Route: 030
     Dates: start: 20110926, end: 20110926
  4. ESTROGEN/PROGESTERONE [Concomitant]
  5. CARDIZEM [Concomitant]
  6. TRAZODONE HCL [Concomitant]

REACTIONS (2)
  - DYSPNOEA [None]
  - WHEEZING [None]
